FAERS Safety Report 6182980-X (Version None)
Quarter: 2009Q2

REPORT INFORMATION
  Report Type: 
  Country: None (occurrence: None)
  Receive Date: 20090507
  Receipt Date: 20090428
  Transmission Date: 20091009
  Serious: Yes (Other)
  Sender: FDA-Public Use
  Company Number: PHHY2009FR16346

PATIENT
  Age: 79 Year
  Sex: Female

DRUGS (2)
  1. ACLASTA [Suspect]
     Indication: OSTEOPOROSIS
     Dosage: UNK
  2. ALDACTONE [Concomitant]
     Indication: PRIMARY HYPERALDOSTERONISM

REACTIONS (4)
  - BONE PAIN [None]
  - MOBILITY DECREASED [None]
  - TENDON PAIN [None]
  - TENDON RUPTURE [None]
